FAERS Safety Report 8687103 (Version 2)
Quarter: 2013Q1

REPORT INFORMATION
  Report Type: Spontaneous
  Country: FR (occurrence: FR)
  Receive Date: 20120727
  Receipt Date: 20130116
  Transmission Date: 20140127
  Serious: Yes (Hospitalization)
  Sender: FDA-Public Use
  Company Number: FR-009507513-1207FRA003452

PATIENT
  Age: 50 Year
  Sex: Male

DRUGS (3)
  1. VICTRELIS [Suspect]
     Indication: HEPATITIS C
     Dosage: 200 MG, UNK
     Route: 048
     Dates: end: 20120528
  2. PEGASYS [Suspect]
     Indication: HEPATITIS C
     Dosage: UNK
     Dates: start: 20110715, end: 20120525
  3. COPEGUS [Suspect]
     Indication: HEPATITIS C
     Dosage: UNK
     Dates: start: 20110715, end: 20120528

REACTIONS (1)
  - Acute polyneuropathy [Recovering/Resolving]
